FAERS Safety Report 7369509 (Version 2)
Quarter: 2012Q4

REPORT INFORMATION
  Report Type: 
  Country: BR (occurrence: BR)
  Receive Date: 20100428
  Receipt Date: 20121022
  Transmission Date: 20130627
  Serious: Yes (Hospitalization, Disabling)
  Sender: FDA-Public Use
  Company Number: BR-SANOFI-AVENTIS-2010SA023460

PATIENT
  Age: 67 Year
  Sex: Female
  Weight: 72 kg

DRUGS (10)
  1. LANTUS [Suspect]
     Indication: TYPE 2 DIABETES MELLITUS
     Route: 058
     Dates: start: 2008
  2. UNSPECIFIED INGREDIENT [Suspect]
     Indication: DEVICE THERAPY
     Dates: start: 2008
  3. METFORMIN [Concomitant]
     Indication: TYPE 2 DIABETES MELLITUS
     Route: 048
  4. NOVORAPID [Concomitant]
     Indication: TYPE 2 DIABETES MELLITUS
     Dosage: according to carbohydrate count
     Route: 058
  5. PURAN T4 [Concomitant]
     Indication: THYROID DISORDER NOS
     Route: 048
  6. DIOVANE [Concomitant]
     Indication: BLOOD PRESSURE
     Dosage: 320/12.5 MG
     Route: 048
  7. HYDRALAZINE [Concomitant]
     Indication: BLOOD PRESSURE
     Route: 048
  8. AAS [Concomitant]
     Indication: CEREBROVASCULAR ACCIDENT
     Route: 048
  9. CITALOR [Concomitant]
     Indication: CHOLESTEROL
     Route: 048
  10. MULTIVITAMINS [Concomitant]
     Indication: CHOLESTEROL
     Route: 048

REACTIONS (4)
  - Cerebrovascular accident [Recovered/Resolved with Sequelae]
  - Paralysis [Unknown]
  - Blood cholesterol decreased [Unknown]
  - Hyperglycaemia [Recovered/Resolved]
